FAERS Safety Report 4876068-5 (Version None)
Quarter: 2006Q1

REPORT INFORMATION
  Report Type: 
  Country: None (occurrence: None)
  Receive Date: 20060106
  Receipt Date: 20060106
  Transmission Date: 20060701
  Serious: Yes (Hospitalization, Other)
  Sender: FDA-Public Use
  Company Number: None

PATIENT
  Sex: Male
  Weight: 93.1 kg

DRUGS (8)
  1. TEMODAR [Suspect]
     Indication: NERVOUS SYSTEM DISORDER
     Dosage: SEE IMAGE
     Route: 048
     Dates: start: 20060102
  2. TEMODAR [Suspect]
     Indication: OLIGODENDROGLIOMA
     Dosage: SEE IMAGE
     Route: 048
     Dates: start: 20060102
  3. . [Concomitant]
  4. DECADRON [Concomitant]
  5. DEPAKOTE [Concomitant]
  6. KEPPRA [Concomitant]
  7. LAMICTAL [Concomitant]
  8. NEURONTIN [Concomitant]

REACTIONS (1)
  - PNEUMONIA [None]
